FAERS Safety Report 20519353 (Version 3)
Quarter: 2022Q3

REPORT INFORMATION
  Report Type: Spontaneous
  Country: JP (occurrence: JP)
  Receive Date: 20220225
  Receipt Date: 20220907
  Transmission Date: 20221027
  Serious: No
  Sender: FDA-Public Use
  Company Number: JP-GLAXOSMITHKLINE-JP2022JPN030779

PATIENT

DRUGS (6)
  1. SOTROVIMAB [Suspect]
     Active Substance: SOTROVIMAB
     Indication: COVID-19
     Dosage: 500 MG/DAY
     Route: 041
  2. COMIRNATY [Suspect]
     Active Substance: TOZINAMERAN
     Indication: COVID-19 prophylaxis
     Dosage: UNK
     Route: 030
     Dates: start: 20210928
  3. CALONAL [Suspect]
     Active Substance: ACETAMINOPHEN
     Indication: COVID-19
     Dosage: 400 MG/DOSE AS NEEDED
     Route: 048
     Dates: start: 20220217, end: 20220218
  4. HERBALS [Suspect]
     Active Substance: HERBALS
     Indication: COVID-19
     Dosage: 7.5 G/DAY
     Route: 048
     Dates: start: 20220219, end: 20220222
  5. DEXTROMETHORPHAN HYDROBROMIDE [Suspect]
     Active Substance: DEXTROMETHORPHAN HYDROBROMIDE
     Indication: COVID-19
     Dosage: 45 MG/DAY
     Route: 048
     Dates: start: 20220219
  6. DEQUALINIUM CHLORIDE [Suspect]
     Active Substance: DEQUALINIUM CHLORIDE
     Indication: COVID-19
     Dosage: 1.5 MG/DAY
     Route: 048
     Dates: start: 20220219, end: 20220222

REACTIONS (1)
  - Exposure during pregnancy [Unknown]
